FAERS Safety Report 5261720-2 (Version None)
Quarter: 2007Q1

REPORT INFORMATION
  Report Type: 
  Country: None (occurrence: None)
  Receive Date: 20070307
  Receipt Date: 20070228
  Transmission Date: 20070707
  Serious: Yes (Death, Hospitalization)
  Sender: FDA-Public Use
  Company Number: 028-21880-06120756

PATIENT
  Age: 48 Year
  Sex: Male
  Weight: 73.5 kg

DRUGS (1)
  1. REVLIMID [Suspect]
     Indication: NON-HODGKIN'S LYMPHOMA
     Dosage: ORAL
     Route: 048
     Dates: start: 20060927, end: 20061114

REACTIONS (6)
  - ANAEMIA [None]
  - DISEASE PROGRESSION [None]
  - LYMPHOMA [None]
  - NEUTROPHIL COUNT DECREASED [None]
  - PLATELET COUNT DECREASED [None]
  - WHITE BLOOD CELL COUNT DECREASED [None]
